FAERS Safety Report 10264547 (Version 1)
Quarter: 2014Q2

REPORT INFORMATION
  Report Type: Spontaneous
  Country: US (occurrence: US)
  Receive Date: 20140627
  Receipt Date: 20140627
  Transmission Date: 20141212
  Serious: No
  Sender: FDA-Public Use
  Company Number: US-BRACCO-010766

PATIENT
  Age: 60 Year
  Sex: Female

DRUGS (2)
  1. MULTIHANCE [Suspect]
     Indication: NUCLEAR MAGNETIC RESONANCE IMAGING
     Route: 042
     Dates: start: 20140310, end: 20140310
  2. ALL OTHER THERAPEUTIC PRODUCTS [Concomitant]
     Indication: MIGRAINE

REACTIONS (4)
  - Gait disturbance [Unknown]
  - Nasal congestion [Unknown]
  - Headache [Unknown]
  - Chest discomfort [Unknown]
